FAERS Safety Report 5398965-7 (Version None)
Quarter: 2007Q3

REPORT INFORMATION
  Report Type: 
  Country: None (occurrence: None)
  Receive Date: 20070727
  Receipt Date: 20070724
  Transmission Date: 20080115
  Serious: Yes (Hospitalization)
  Sender: FDA-Public Use
  Company Number: GB-BAYER-200713324GDS

PATIENT
  Age: 25 Year
  Sex: Male

DRUGS (3)
  1. CIPROFLOXACIN [Suspect]
     Indication: EYE INFECTION
     Dosage: TOTAL DAILY DOSE: 1500 MG
     Route: 048
  2. PENICILLIN G [Concomitant]
     Indication: EYE INFECTION
     Route: 061
  3. CEFTAZIDIME [Concomitant]
     Indication: EYE INFECTION
     Route: 061

REACTIONS (3)
  - EYE EXCISION [None]
  - ILL-DEFINED DISORDER [None]
  - KERATITIS BACTERIAL [None]
